FAERS Safety Report 6835953-5 (Version None)
Quarter: 2010Q3

REPORT INFORMATION
  Report Type: 
  Country: None (occurrence: None)
  Receive Date: 20100713
  Receipt Date: 20100707
  Transmission Date: 20110219
  Serious: Yes (Other)
  Sender: FDA-Public Use
  Company Number: A0866331A

PATIENT
  Age: 71 Year
  Sex: Female

DRUGS (10)
  1. ADVAIR DISKUS 100/50 [Suspect]
     Indication: CHRONIC OBSTRUCTIVE PULMONARY DISEASE
     Dosage: 1PUFF TWICE PER DAY
     Route: 055
     Dates: start: 20060101
  2. COMBIVENT [Concomitant]
  3. CLONAZEPAM [Concomitant]
  4. LASIX [Concomitant]
  5. ZOLOFT [Concomitant]
  6. XANAX [Concomitant]
  7. AMBIEN [Concomitant]
  8. NITROSTAT [Concomitant]
  9. KLOR-CON [Concomitant]
  10. OXYGEN [Concomitant]

REACTIONS (3)
  - BLOOD GLUCOSE INCREASED [None]
  - DIABETES MELLITUS [None]
  - WEIGHT INCREASED [None]
